FAERS Safety Report 13259224 (Version 1)
Quarter: 2017Q1

REPORT INFORMATION
  Report Type: Spontaneous
  Country: US (occurrence: US)
  Receive Date: 20170222
  Receipt Date: 20170222
  Transmission Date: 20170428
  Serious: No
  Sender: FDA-Public Use
  Company Number: US-AMGEN-USASP2017026449

PATIENT
  Sex: Male

DRUGS (10)
  1. ADVIL [Concomitant]
     Active Substance: IBUPROFEN
     Dosage: UNK
  2. PREDNISONE. [Concomitant]
     Active Substance: PREDNISONE
  3. METHOTREXATE. [Concomitant]
     Active Substance: METHOTREXATE
  4. AZELASTINE [Concomitant]
     Active Substance: AZELASTINE
  5. HYDROCHLOROTHIAZIDE. [Concomitant]
     Active Substance: HYDROCHLOROTHIAZIDE
  6. ENBREL [Suspect]
     Active Substance: ETANERCEPT
     Indication: RHEUMATOID ARTHRITIS
     Dosage: 50 MG, QWK
     Route: 058
     Dates: start: 201510, end: 201612
  7. AMLODIPINE [Concomitant]
     Active Substance: AMLODIPINE BESYLATE
  8. SULFASALAZINE. [Concomitant]
     Active Substance: SULFASALAZINE
  9. LISINOPRIL. [Concomitant]
     Active Substance: LISINOPRIL
  10. FOLIC ACID. [Concomitant]
     Active Substance: FOLIC ACID

REACTIONS (1)
  - Drug effect decreased [Unknown]
